FAERS Safety Report 5401131-X (Version None)
Quarter: 2007Q3

REPORT INFORMATION
  Report Type: 
  Country: None (occurrence: None)
  Receive Date: 20070731
  Receipt Date: 20070724
  Transmission Date: 20080115
  Serious: Yes (Hospitalization)
  Sender: FDA-Public Use
  Company Number: PHBS2002JP04177

PATIENT
  Age: 53 Year
  Sex: Female

DRUGS (3)
  1. DEPAS [Suspect]
     Indication: SUICIDE ATTEMPT
     Dosage: UNK, UNK
     Route: 048
     Dates: start: 20001024, end: 20001024
  2. HALCION [Suspect]
     Indication: SUICIDE ATTEMPT
     Dosage: UNK, UNK
     Route: 048
     Dates: start: 20001024, end: 20001024
  3. LUDIOMIL [Suspect]
     Indication: SUICIDE ATTEMPT
     Dosage: UNK, UNK
     Route: 048
     Dates: start: 20001024, end: 20001024

REACTIONS (13)
  - ALANINE AMINOTRANSFERASE INCREASED [None]
  - ASPARTATE AMINOTRANSFERASE INCREASED [None]
  - BLISTER [None]
  - BLOOD CREATINE PHOSPHOKINASE INCREASED [None]
  - BLOOD LACTATE DEHYDROGENASE INCREASED [None]
  - COMA [None]
  - LOSS OF CONSCIOUSNESS [None]
  - OVERDOSE [None]
  - SKIN GRAFT [None]
  - SKIN NECROSIS [None]
  - SKIN ULCER [None]
  - SUICIDE ATTEMPT [None]
  - WOUND DEBRIDEMENT [None]
